FAERS Safety Report 4283799-7 (Version None)
Quarter: 2004Q1

REPORT INFORMATION
  Report Type: 
  Country: None (occurrence: None)
  Receive Date: 20040115
  Receipt Date: 20030430
  Transmission Date: 20041129
  Serious: Yes (Other)
  Sender: FDA-Public Use
  Company Number: NSADSS2003020846

PATIENT
  Age: 81 Year
  Sex: Female
  Weight: 108.8633 kg

DRUGS (10)
  1. DOXIL [Suspect]
     Indication: KAPOSI'S SARCOMA
     Dosage: 70 MG , INTRAVENOUS DRIP
     Route: 041
     Dates: start: 20030428
  2. DOXIL [Suspect]
  3. ANZEMET (DOLASETRON MESILATE) [Concomitant]
  4. DEXAMETHASONE [Concomitant]
  5. LOTENSIN [Concomitant]
  6. KLONOPIN [Concomitant]
  7. IBUPROFEN [Concomitant]
  8. HYDROCODONE [Concomitant]
  9. MULTI-VITAMINS [Concomitant]
  10. VITAMIN C (ASCORBIC ACID) [Concomitant]

REACTIONS (5)
  - BACK PAIN [None]
  - CHEST PAIN [None]
  - DYSPNOEA [None]
  - FLUSHING [None]
  - HYPERSENSITIVITY [None]
